FAERS Safety Report 23999802 (Version 2)
Quarter: 2024Q3

REPORT INFORMATION
  Report Type: Spontaneous
  Country: US (occurrence: US)
  Receive Date: 20240621
  Receipt Date: 20240722
  Transmission Date: 20241016
  Serious: No
  Sender: IPSEN
  Company Number: US-IPSEN Group, Research and Development-2024-11774

PATIENT
  Sex: Female
  Weight: 58.01 kg

DRUGS (2)
  1. BYLVAY [Suspect]
     Active Substance: ODEVIXIBAT
     Indication: Inborn error of bilirubin metabolism
     Route: 048
  2. BYLVAY [Suspect]
     Active Substance: ODEVIXIBAT
     Indication: Off label use

REACTIONS (4)
  - Abdominal discomfort [Unknown]
  - Product use issue [Unknown]
  - Poor school attendance [Unknown]
  - Off label use [Unknown]
